FAERS Safety Report 14603370 (Version 1)
Quarter: 2018Q1

REPORT INFORMATION
  Report Type: Spontaneous
  Country: US (occurrence: US)
  Receive Date: 20180305
  Receipt Date: 20180305
  Transmission Date: 20180509
  Serious: Yes (Life-Threatening, Hospitalization)
  Sender: FDA-Public Use
  Company Number: None

PATIENT
  Age: 28 Year
  Sex: Female
  Weight: 48.54 kg

DRUGS (2)
  1. LEXAPRO [Concomitant]
     Active Substance: ESCITALOPRAM OXALATE
  2. MIRENA [Suspect]
     Active Substance: LEVONORGESTREL
     Dates: start: 20120401, end: 20140317

REACTIONS (9)
  - Abscess [None]
  - Anxiety [None]
  - Loss of personal independence in daily activities [None]
  - Depression [None]
  - Staphylococcal infection [None]
  - Constipation [None]
  - Pelvic inflammatory disease [None]
  - Impaired work ability [None]
  - Infertility [None]

NARRATIVE: CASE EVENT DATE: 20140316
